FAERS Safety Report 6148470-5 (Version None)
Quarter: 2009Q2

REPORT INFORMATION
  Report Type: 
  Country: None (occurrence: None)
  Receive Date: 20090406
  Receipt Date: 20090406
  Transmission Date: 20091009
  Serious: No
  Sender: FDA-Public Use
  Company Number: None

PATIENT
  Age: 52 Year
  Sex: Female
  Weight: 77.1115 kg

DRUGS (2)
  1. LEVAQUIN [Suspect]
     Indication: STREPTOCOCCAL INFECTION
     Dosage: BAG 1 EVERY 8 HOURS IV DRIP
     Route: 041
     Dates: start: 20060910, end: 20060915
  2. LEVAQUIN [Suspect]
     Indication: STREPTOCOCCAL INFECTION
     Dosage: BAG 1 EVERY 8 HOURS IV DRIP
     Route: 041
     Dates: start: 20070307, end: 20090310

REACTIONS (7)
  - ARTHRALGIA [None]
  - JOINT STIFFNESS [None]
  - PLANTAR FASCIITIS [None]
  - STAPHYLOCOCCAL INFECTION [None]
  - TENDON DISORDER [None]
  - TENDON PAIN [None]
  - TENDON RUPTURE [None]
